FAERS Safety Report 24314982 (Version 1)
Quarter: 2024Q3

REPORT INFORMATION
  Report Type: Spontaneous
  Country: CA (occurrence: CA)
  Receive Date: 20240913
  Receipt Date: 20240913
  Transmission Date: 20241017
  Serious: Yes (Other)
  Sender: AMGEN
  Company Number: CA-AMGEN-CANSP2024178108

PATIENT
  Age: 68 Year
  Sex: Female

DRUGS (1)
  1. MVASI [Suspect]
     Active Substance: BEVACIZUMAB-AWWB
     Indication: Product used for unknown indication
     Dosage: 375 MILLIGRAM
     Route: 065

REACTIONS (3)
  - Respiratory distress [Unknown]
  - Pallor [Unknown]
  - Waist circumference increased [Unknown]
